FAERS Safety Report 26094713 (Version 1)
Quarter: 2025Q4

REPORT INFORMATION
  Report Type: Spontaneous
  Country: CN (occurrence: CN)
  Receive Date: 20251126
  Receipt Date: 20251126
  Transmission Date: 20260118
  Serious: Yes (Other)
  Sender: BEIGENE
  Company Number: CN-BEONE MEDICINES-BGN-2025-020617

PATIENT
  Age: 81 Year
  Sex: Male

DRUGS (6)
  1. TISLELIZUMAB [Suspect]
     Active Substance: TISLELIZUMAB
     Indication: Oesophageal carcinoma
     Dates: start: 20251015, end: 20251015
  2. TISLELIZUMAB [Suspect]
     Active Substance: TISLELIZUMAB
     Route: 041
     Dates: start: 20251015, end: 20251015
  3. TISLELIZUMAB [Suspect]
     Active Substance: TISLELIZUMAB
     Route: 041
     Dates: start: 20251015, end: 20251015
  4. TISLELIZUMAB [Suspect]
     Active Substance: TISLELIZUMAB
     Dates: start: 20251015, end: 20251015
  5. GIMERACIL\OTERACIL\TEGAFUR [Suspect]
     Active Substance: GIMERACIL\OTERACIL POTASSIUM\TEGAFUR
     Indication: Oesophageal carcinoma
     Dosage: 50 MILLIGRAM, BID (1 CAPSULE IN THE MORNING, 2 CAPSULES IN THE EVENING) D1-14 Q3W.
     Route: 048
     Dates: start: 20251015, end: 20251028
  6. GIMERACIL\OTERACIL\TEGAFUR [Suspect]
     Active Substance: GIMERACIL\OTERACIL POTASSIUM\TEGAFUR
     Dosage: 50 MILLIGRAM, BID (1 CAPSULE IN THE MORNING, 2 CAPSULES IN THE EVENING) D1-14 Q3W.
     Dates: start: 20251015, end: 20251028

REACTIONS (2)
  - Myelosuppression [Recovering/Resolving]
  - White blood cell count decreased [Recovering/Resolving]

NARRATIVE: CASE EVENT DATE: 20251110
